FAERS Safety Report 13161513 (Version 1)
Quarter: 2017Q1

REPORT INFORMATION
  Report Type: Spontaneous
  Country: CN (occurrence: CN)
  Receive Date: 20170130
  Receipt Date: 20170130
  Transmission Date: 20170428
  Serious: Yes (Disabling)
  Sender: FDA-Public Use
  Company Number: CN-ROCHE-1885115

PATIENT
  Age: 76 Year
  Sex: Female
  Weight: 70 kg

DRUGS (6)
  1. ROCEPHIN [Suspect]
     Active Substance: CEFTRIAXONE SODIUM
     Indication: URINARY TRACT INFECTION
     Route: 041
     Dates: start: 20161003, end: 20161011
  2. CLOPIDOGREL HYDROGEN SULFATE [Concomitant]
     Active Substance: CLOPIDOGREL BISULFATE
     Dosage: AS ANTI PLATELET AGGREGATION
     Route: 048
     Dates: start: 20160501, end: 20161011
  3. SODIUM CHLORIDE. [Concomitant]
     Active Substance: SODIUM CHLORIDE
     Dosage: 0.9%
     Route: 065
  4. HEPARIN CALCIUM [Suspect]
     Active Substance: HEPARIN CALCIUM
     Indication: CEREBRAL INFARCTION
     Dosage: LOW MOLECULAR WEIGHT HEPARINS CALCIUM
     Route: 058
     Dates: start: 20160927, end: 20161011
  5. ASPIRIN. [Concomitant]
     Active Substance: ASPIRIN
     Dosage: AS ANTI PLATELET AGGREGATION
     Route: 048
     Dates: start: 20160501, end: 20161011
  6. ROSUVASTATIN CALCIUM. [Suspect]
     Active Substance: ROSUVASTATIN CALCIUM
     Indication: LIPIDS INCREASED
     Route: 048
     Dates: start: 20160927, end: 20161011

REACTIONS (1)
  - Hepatic lesion [Unknown]

NARRATIVE: CASE EVENT DATE: 20161010
